FAERS Safety Report 5522179-0 (Version None)
Quarter: 2007Q4

REPORT INFORMATION
  Report Type: 
  Country: None (occurrence: None)
  Receive Date: 20071120
  Receipt Date: 20071113
  Transmission Date: 20080405
  Serious: Yes (Hospitalization)
  Sender: FDA-Public Use
  Company Number: A0694602A

PATIENT
  Age: 61 Year
  Sex: Female
  Weight: 57.5 kg

DRUGS (2)
  1. LAPATINIB [Suspect]
     Dosage: 1500MG PER DAY
     Route: 048
     Dates: start: 20070416, end: 20071011
  2. BEVACIZUMAB [Suspect]
     Dosage: 10MGK CYCLIC
     Route: 042
     Dates: start: 20070416, end: 20070924

REACTIONS (5)
  - FAECES DISCOLOURED [None]
  - GASTRITIS [None]
  - GASTROINTESTINAL HAEMORRHAGE [None]
  - HAEMOGLOBIN DECREASED [None]
  - LOWER GASTROINTESTINAL HAEMORRHAGE [None]
